FAERS Safety Report 5824159-4 (Version None)
Quarter: 2008Q3

REPORT INFORMATION
  Report Type: 
  Country: None (occurrence: None)
  Receive Date: 20080722
  Receipt Date: 20080704
  Transmission Date: 20090109
  Serious: Yes (Hospitalization)
  Sender: FDA-Public Use
  Company Number: 8034615

PATIENT
  Age: 3 Month
  Sex: Male
  Weight: 7 kg

DRUGS (2)
  1. LEVETIRACETAM [Suspect]
     Indication: EPILEPSY
     Dosage: 15 MG 2/D PO
     Route: 048
     Dates: start: 20080626, end: 20080704
  2. VALPROIC ACID [Suspect]
     Indication: EPILEPSY
     Dosage: 12.5 MG 2/D PO
     Route: 048
     Dates: start: 20080606, end: 20080704

REACTIONS (8)
  - CONVULSION [None]
  - DRUG INEFFECTIVE [None]
  - EPILEPSY [None]
  - HAEMORRHAGE [None]
  - INJECTION SITE HAEMORRHAGE [None]
  - PETECHIAE [None]
  - PLATELET COUNT DECREASED [None]
  - THROMBOCYTOPENIA [None]
